FAERS Safety Report 14115116 (Version 1)
Quarter: 2017Q4

REPORT INFORMATION
  Report Type: Spontaneous
  Country: US (occurrence: US)
  Receive Date: 20171023
  Receipt Date: 20171023
  Transmission Date: 20180321
  Serious: No
  Sender: FDA-Public Use
  Company Number: US-ALLERGAN-1681746US

PATIENT
  Age: 61 Year
  Sex: Female
  Weight: 83.9 kg

DRUGS (2)
  1. LINZESS [Suspect]
     Active Substance: LINACLOTIDE
     Dosage: 290 ?G, QD
     Route: 048
     Dates: end: 201611
  2. LINZESS [Suspect]
     Active Substance: LINACLOTIDE
     Indication: IRRITABLE BOWEL SYNDROME
     Dosage: 290 ?G, QD
     Route: 048

REACTIONS (4)
  - Off label use [Unknown]
  - Haemorrhoids [Unknown]
  - Drug dose omission [Unknown]
  - Constipation [Not Recovered/Not Resolved]

NARRATIVE: CASE EVENT DATE: 20161216
